FAERS Safety Report 12598534 (Version 1)
Quarter: 2016Q3

REPORT INFORMATION
  Report Type: Spontaneous
  Country: JP (occurrence: JP)
  Receive Date: 20160727
  Receipt Date: 20160727
  Transmission Date: 20161109
  Serious: Yes (Hospitalization, Other)
  Sender: FDA-Public Use
  Company Number: JP-PFIZER INC-2015431527

PATIENT
  Age: 83 Year
  Sex: Female
  Weight: 36.5 kg

DRUGS (13)
  1. LYRICA [Suspect]
     Active Substance: PREGABALIN
     Indication: NEURALGIA
     Dosage: 75 MG, 1X/DAY BEFORE BEDTIME
     Route: 048
     Dates: start: 20150410, end: 20150925
  2. VALSARTAN. [Concomitant]
     Active Substance: VALSARTAN
     Dosage: 80 MG, 1X/DAY
     Route: 048
     Dates: start: 20120808
  3. ASPIRIN. [Concomitant]
     Active Substance: ASPIRIN
     Dosage: 100 MG, 1X/DAY
     Route: 048
     Dates: start: 20120808
  4. RABEPRAZOLE [Concomitant]
     Active Substance: RABEPRAZOLE
     Dosage: 10 MG, 1X/DAY
     Route: 048
     Dates: start: 20120808
  5. LIMAPROST [Concomitant]
     Active Substance: LIMAPROST
     Dosage: 5 MG, 3X/DAY
     Route: 048
     Dates: start: 20150325
  6. MOSAPRIDE [Concomitant]
     Active Substance: MOSAPRIDE
     Dosage: 5 MG, 3X/DAY
     Route: 048
     Dates: start: 20120808
  7. TRAMAL OD [Interacting]
     Active Substance: TRAMADOL
     Indication: PAIN
     Dosage: 25 MG, 2X/DAY
     Route: 048
     Dates: start: 20150410, end: 20150411
  8. ATORVASTATIN [Concomitant]
     Active Substance: ATORVASTATIN
     Dosage: 10 MG, 1X/DAY
     Route: 048
     Dates: start: 20120808
  9. FUROSEMIDE. [Concomitant]
     Active Substance: FUROSEMIDE
     Indication: OEDEMA
     Dosage: 40 MG, 1X/DAY
     Route: 048
     Dates: start: 20121012
  10. TOCOPHEROL [Concomitant]
     Active Substance: TOCOPHEROL
     Indication: PERIPHERAL COLDNESS
     Dosage: 10 MG, 3X/DAY
     Dates: start: 20131213
  11. NAUZELIN [Concomitant]
     Active Substance: DOMPERIDONE
     Indication: NAUSEA
     Dosage: 10 MG, 2X/DAY
     Route: 048
     Dates: start: 20150410, end: 20150411
  12. CELECOX [Concomitant]
     Active Substance: CELECOXIB
     Indication: PAIN
     Dosage: 100 MG, 2X/DAY
     Route: 048
     Dates: start: 20130321, end: 20150925
  13. PREDNISOLONE. [Concomitant]
     Active Substance: PREDNISOLONE
     Indication: SCLERODERMA
     Dosage: 5 MG, 1X/DAY
     Route: 048
     Dates: start: 20121012

REACTIONS (7)
  - Feeling abnormal [Unknown]
  - Nausea [Unknown]
  - Hypothermia [Unknown]
  - Drug interaction [Unknown]
  - Altered state of consciousness [Recovered/Resolved]
  - Hypoglycaemia [Recovered/Resolved]
  - Vomiting [Unknown]

NARRATIVE: CASE EVENT DATE: 20150410
